FAERS Safety Report 6176506-4 (Version None)
Quarter: 2009Q2

REPORT INFORMATION
  Report Type: 
  Country: None (occurrence: None)
  Receive Date: 20090501
  Receipt Date: 20090424
  Transmission Date: 20091009
  Serious: Yes (Other)
  Sender: FDA-Public Use
  Company Number: PHEH2007US11023

PATIENT
  Sex: Male

DRUGS (1)
  1. ZOMETA [Suspect]
     Indication: MULTIPLE MYELOMA

REACTIONS (15)
  - ANXIETY [None]
  - BACK INJURY [None]
  - BONE LESION [None]
  - DECREASED INTEREST [None]
  - DEFORMITY [None]
  - EMOTIONAL DISTRESS [None]
  - HYPOPHAGIA [None]
  - INFECTION [None]
  - LIFE EXPECTANCY SHORTENED [None]
  - OSTEOARTHRITIS [None]
  - OSTEONECROSIS [None]
  - OVERDOSE [None]
  - PAIN [None]
  - RESORPTION BONE INCREASED [None]
  - STOMATITIS [None]
